FAERS Safety Report 6782143-0 (Version None)
Quarter: 2010Q2

REPORT INFORMATION
  Report Type: 
  Country: None (occurrence: None)
  Receive Date: 20100621
  Receipt Date: 20100615
  Transmission Date: 20101027
  Serious: Yes (Hospitalization)
  Sender: FDA-Public Use
  Company Number: CA-MERCK-1006USA02499

PATIENT
  Age: 54 Year
  Sex: Female
  Weight: 76 kg

DRUGS (10)
  1. JANUVIA [Suspect]
     Route: 048
  2. ASPIRINE [Concomitant]
     Route: 065
  3. AVANDIA [Concomitant]
     Route: 065
  4. DILANTIN [Concomitant]
     Route: 065
  5. LIPIDIL [Concomitant]
     Route: 065
  6. LOPID [Concomitant]
     Route: 065
  7. METFORMIN [Concomitant]
     Route: 065
  8. NIACIN [Concomitant]
     Route: 065
  9. PARIET [Concomitant]
     Route: 065
  10. SYNTHROID [Concomitant]
     Route: 065

REACTIONS (4)
  - ABDOMINAL PAIN UPPER [None]
  - BLOOD ALKALINE PHOSPHATASE INCREASED [None]
  - GAMMA-GLUTAMYLTRANSFERASE INCREASED [None]
  - LIPASE INCREASED [None]
